FAERS Safety Report 17582390 (Version 1)
Quarter: 2020Q1

REPORT INFORMATION
  Report Type: Spontaneous
  Country: US (occurrence: US)
  Receive Date: 20200325
  Receipt Date: 20200325
  Transmission Date: 20200409
  Serious: Yes (Hospitalization, Other)
  Sender: FDA-Public Use
  Company Number: US-GILEAD-2020-0456332

PATIENT
  Age: 63 Year
  Sex: Female
  Weight: 75 kg

DRUGS (1)
  1. YESCARTA [Suspect]
     Active Substance: AXICABTAGENE CILOLEUCEL
     Indication: DIFFUSE LARGE B-CELL LYMPHOMA RECURRENT
     Dosage: 1 DOSAGE FORM
     Route: 042
     Dates: start: 20190619, end: 20190619

REACTIONS (8)
  - Neurotoxicity [Recovering/Resolving]
  - Nephropathy toxic [Recovering/Resolving]
  - Asthenia [Recovering/Resolving]
  - Cytokine release syndrome [Recovering/Resolving]
  - Mental disorder [Recovering/Resolving]
  - Encephalopathy [Recovering/Resolving]
  - Azotaemia [Recovering/Resolving]
  - Deep vein thrombosis [Recovering/Resolving]

NARRATIVE: CASE EVENT DATE: 20190620
